FAERS Safety Report 6268382-6 (Version None)
Quarter: 2009Q3

REPORT INFORMATION
  Report Type: 
  Country: None (occurrence: None)
  Receive Date: 20090715
  Receipt Date: 20090702
  Transmission Date: 20100115
  Serious: Yes (Other)
  Sender: FDA-Public Use
  Company Number: US-ROCHE-636711

PATIENT
  Sex: Female

DRUGS (9)
  1. PEG-INTERFERON A-2A (RO 25-8310) [Suspect]
     Indication: HEPATITIS C
     Dosage: FORM: PRE-FILLED SYRINGE
     Route: 065
     Dates: start: 20090128
  2. PEG-INTERFERON A-2A (RO 25-8310) [Suspect]
     Dosage: PATIENT IN WEEK 23 OF THE TREATMENT
     Route: 065
  3. RIBAVIRIN [Suspect]
     Indication: HEPATITIS C
     Dosage: DIVIDED DOSES
     Route: 065
     Dates: start: 20090128
  4. RIBAVIRIN [Suspect]
     Dosage: PATIENT IN WEEK 23 OF TREATMENT; DIVIDED DOSES
     Route: 065
  5. DEPAKOTE [Concomitant]
  6. PAROXETINE HCL [Concomitant]
  7. DERMACARE [Concomitant]
     Dosage: DRUG: DESICARE
  8. XANAX [Concomitant]
  9. TYLENOL W/ CODEINE [Concomitant]

REACTIONS (3)
  - ALVEOLAR OSTEITIS [None]
  - ANAEMIA [None]
  - WHITE BLOOD CELL COUNT DECREASED [None]
